FAERS Safety Report 6105719-2 (Version None)
Quarter: 2009Q1

REPORT INFORMATION
  Report Type: 
  Country: None (occurrence: None)
  Receive Date: 20090304
  Receipt Date: 20090304
  Transmission Date: 20090719
  Serious: No
  Sender: FDA-Public Use
  Company Number: None

PATIENT
  Sex: Female
  Weight: 71.55 kg

DRUGS (14)
  1. NORTRIPTYLINE HCL [Suspect]
     Dosage: 10 MG CAPSULE 10 MG QHS ORAL
     Route: 048
     Dates: start: 20081028, end: 20090302
  2. ASPIRIN [Concomitant]
  3. BETAMETHASONE DIPROPIONATE [Concomitant]
  4. BUSPIRONE (BUSPIRONE HCL) [Concomitant]
  5. CITALOPRAM HYDROBROMIDE [Concomitant]
  6. COREG [Concomitant]
  7. DIOVAN [Concomitant]
  8. IMDUR ER (ISOSORBIDE MONONITRATE (SR)) [Concomitant]
  9. MVI (MULTIVITAMINS) [Concomitant]
  10. NTG (NITROGLYCERIN) [Concomitant]
  11. POTASSIUM CITRATE [Concomitant]
  12. PRILOSEC OTC (OMEPRAZOLE OTC) [Suspect]
  13. SIMVASTIN [Concomitant]
  14. WELLBUTRIN SR (BUPROPION HCL SUSTAINED RELEASE) [Concomitant]

REACTIONS (1)
  - SICCA SYNDROME [None]
